FAERS Safety Report 9726173 (Version 2)
Quarter: 2014Q1

REPORT INFORMATION
  Report Type: Spontaneous
  Country: US (occurrence: US)
  Receive Date: 20131203
  Receipt Date: 20140325
  Transmission Date: 20141002
  Serious: Yes (Other)
  Sender: FDA-Public Use
  Company Number: US-SA-2013SA123833

PATIENT
  Age: 33 Year
  Sex: Male

DRUGS (18)
  1. FABRAZYME [Suspect]
     Indication: FABRY^S DISEASE
     Route: 042
     Dates: start: 201203
  2. DIPHENHYDRAMINE [Concomitant]
     Indication: PREMEDICATION
     Route: 042
  3. AMITRIPTYLINE [Concomitant]
  4. BUPROPION [Concomitant]
  5. CARBAMAZEPINE [Concomitant]
  6. CALCIUM CARBONATE [Concomitant]
  7. GABAPENTIN [Concomitant]
  8. MORPHINE SULFATE [Concomitant]
  9. SEVELAMER [Concomitant]
  10. WARFARIN [Concomitant]
  11. TYLENOL [Concomitant]
  12. CINACALCET HYDROCHLORIDE [Concomitant]
  13. LACTULOSE [Concomitant]
  14. NEPHRO-VITE RX [Concomitant]
  15. COUMADIN [Concomitant]
     Indication: DEEP VEIN THROMBOSIS
  16. DOXERCALCIFEROL [Concomitant]
  17. HYDROCORTISONE [Concomitant]
  18. TOLNAFTATE [Concomitant]

REACTIONS (1)
  - Renal failure chronic [Unknown]
